FAERS Safety Report 12633079 (Version 2)
Quarter: 2016Q3

REPORT INFORMATION
  Report Type: Spontaneous
  Country: US (occurrence: US)
  Receive Date: 20160808
  Receipt Date: 20160808
  Transmission Date: 20161109
  Serious: No
  Sender: FDA-Public Use
  Company Number: US-BEH-2016058385

PATIENT
  Sex: Female
  Weight: 105 kg

DRUGS (41)
  1. LACTULOSE. [Concomitant]
     Active Substance: LACTULOSE
  2. FISH OIL [Concomitant]
     Active Substance: FISH OIL
  3. ATENOLOL. [Concomitant]
     Active Substance: ATENOLOL
  4. ACETAMINOPHEN. [Concomitant]
     Active Substance: ACETAMINOPHEN
  5. DIPHENHYDRAMINE. [Concomitant]
     Active Substance: DIPHENHYDRAMINE
  6. NASACORT [Concomitant]
     Active Substance: TRIAMCINOLONE ACETONIDE
  7. ZOFRAN [Concomitant]
     Active Substance: ONDANSETRON HYDROCHLORIDE
  8. ACTACAND [Concomitant]
  9. VITAMIN D [Concomitant]
     Active Substance: CHOLECALCIFEROL
  10. SYNTHROID [Concomitant]
     Active Substance: LEVOTHYROXINE SODIUM
  11. HIZENTRA [Suspect]
     Active Substance: HUMAN IMMUNOGLOBULIN G
     Dates: start: 20110113
  12. DIFLUCAN [Concomitant]
     Active Substance: FLUCONAZOLE
  13. NYSTOP [Concomitant]
     Active Substance: NYSTATIN
  14. ASPIRIN. [Concomitant]
     Active Substance: ASPIRIN
  15. CLOBESTASOL [Concomitant]
  16. PULMICORT TURBUHALER [Concomitant]
     Active Substance: BUDESONIDE
  17. MULTIVITAMIN [Concomitant]
     Active Substance: VITAMINS
  18. ZYRTEC [Concomitant]
     Active Substance: CETIRIZINE HYDROCHLORIDE
  19. OMEPRAZOLE. [Concomitant]
     Active Substance: OMEPRAZOLE
  20. XIFAN [Concomitant]
  21. MELATONIN [Concomitant]
     Active Substance: MELATONIN
  22. CALCIUM [Concomitant]
     Active Substance: CALCIUM
  23. EPIPEN [Concomitant]
     Active Substance: EPINEPHRINE
  24. LIDOCAINE/PRILOCAINE [Concomitant]
     Active Substance: LIDOCAINE\PRILOCAINE
  25. AMTRIPTYLINE [Concomitant]
  26. ESTRADIOL. [Concomitant]
     Active Substance: ESTRADIOL
  27. KETOROLAC [Concomitant]
     Active Substance: KETOROLAC\KETOROLAC TROMETHAMINE
  28. FROVA [Concomitant]
     Active Substance: FROVATRIPTAN SUCCINATE
  29. CLEOCIN [Concomitant]
     Active Substance: CLINDAMYCIN PHOSPHATE
  30. AZO [Concomitant]
     Active Substance: PHENAZOPYRIDINE HYDROCHLORIDE
  31. MUCINEX [Concomitant]
     Active Substance: GUAIFENESIN
  32. HIZENTRA [Suspect]
     Active Substance: HUMAN IMMUNOGLOBULIN G
     Indication: IMMUNODEFICIENCY COMMON VARIABLE
     Route: 058
  33. HIZENTRA [Suspect]
     Active Substance: HUMAN IMMUNOGLOBULIN G
     Route: 058
  34. PATANOL [Concomitant]
     Active Substance: OLOPATADINE HYDROCHLORIDE
  35. POTASSIUM [Concomitant]
     Active Substance: POTASSIUM
  36. ABILIFY [Concomitant]
     Active Substance: ARIPIPRAZOLE
  37. ACIDOPHILUS [Concomitant]
     Active Substance: LACTOBACILLUS ACIDOPHILUS
  38. CREON [Concomitant]
     Active Substance: PANCRELIPASE AMYLASE\PANCRELIPASE LIPASE\PANCRELIPASE PROTEASE
  39. XANAX [Concomitant]
     Active Substance: ALPRAZOLAM
  40. LEXAPRO [Concomitant]
     Active Substance: ESCITALOPRAM OXALATE
  41. FUROSEMIDE. [Concomitant]
     Active Substance: FUROSEMIDE

REACTIONS (2)
  - Sinusitis [Unknown]
  - Laryngitis [Unknown]
